FAERS Safety Report 5034904-6 (Version None)
Quarter: 2006Q2

REPORT INFORMATION
  Report Type: 
  Country: None (occurrence: None)
  Receive Date: 20060622
  Receipt Date: 20060620
  Transmission Date: 20061013
  Serious: Yes (Hospitalization)
  Sender: FDA-Public Use
  Company Number: E2020-00170-SPO-FR

PATIENT
  Age: 84 Year
  Sex: Male

DRUGS (11)
  1. ARICEPT [Suspect]
     Indication: DEMENTIA ALZHEIMER'S TYPE
     Dosage: SEE IMAGE
     Route: 048
     Dates: start: 20040901, end: 20050318
  2. ARICEPT [Suspect]
     Indication: DEMENTIA ALZHEIMER'S TYPE
     Dosage: SEE IMAGE
     Route: 048
     Dates: start: 20050329
  3. METFORMINE (METFORMIN) [Concomitant]
  4. RAMIPRIL (TRIATEC) (RAMIPRIL) [Concomitant]
  5. FUROSEMIDE [Concomitant]
  6. DL-LYSINE ACETHYLSALICYLATE (ASPEGIC) (ACETYLSALICYLATE LYSINE) [Concomitant]
  7. FENOFIBRATE [Concomitant]
  8. TRINITRINE (NITRIDERM) (GLYCERYL TRINITRATE) [Concomitant]
  9. CARDENSIEL (BISOPROLOL)(BISOPROLOL) [Concomitant]
  10. MOPROL (OMEPRAZOLE) [Concomitant]
  11. KARDEGIC (DL-LYSINE ACETHYSALICYLATE) (ACETYLSALICYLATE LYSINE) [Concomitant]

REACTIONS (6)
  - ARRHYTHMIA [None]
  - ATRIAL FIBRILLATION [None]
  - ATRIOVENTRICULAR BLOCK [None]
  - BRADYARRHYTHMIA [None]
  - BRADYCARDIA [None]
  - VOMITING [None]
